FAERS Safety Report 18475557 (Version 2)
Quarter: 2020Q4

REPORT INFORMATION
  Report Type: Spontaneous
  Country: US (occurrence: US)
  Receive Date: 20201106
  Receipt Date: 20201210
  Transmission Date: 20210114
  Serious: Yes (Hospitalization)
  Sender: FDA-Public Use
  Company Number: US-TEVA-2020-US-1843914

PATIENT
  Sex: Male

DRUGS (9)
  1. ARIPIPRAZOLE. [Suspect]
     Active Substance: ARIPIPRAZOLE
     Indication: TOURETTE^S DISORDER
     Route: 065
  2. RISPERIDONE. [Suspect]
     Active Substance: RISPERIDONE
     Indication: TOURETTE^S DISORDER
     Route: 065
  3. PIMOZIDE. [Suspect]
     Active Substance: PIMOZIDE
     Indication: TOURETTE^S DISORDER
     Route: 065
  4. ROPINIROLE. [Suspect]
     Active Substance: ROPINIROLE
     Indication: PARKINSON^S DISEASE
     Dosage: 24 MILLIGRAM DAILY;
     Route: 065
  5. ZIPRASIDONE. [Suspect]
     Active Substance: ZIPRASIDONE
     Indication: TOURETTE^S DISORDER
     Route: 065
  6. CARBIDOPA\LEVODOPA [Suspect]
     Active Substance: CARBIDOPA\LEVODOPA
     Indication: PARKINSON^S DISEASE
     Dosage: 2 DOSAGE FORMS DAILY; LEVODOPA: 100 MG; CARBIDOPA: 25 MG
     Route: 065
  7. AMANTADINE. [Suspect]
     Active Substance: AMANTADINE HYDROCHLORIDE
     Indication: PARKINSON^S DISEASE
     Dosage: 300 MILLIGRAM DAILY;
     Route: 065
  8. CARBIDOPA\LEVODOPA [Suspect]
     Active Substance: CARBIDOPA\LEVODOPA
     Dosage: 1 DOSAGE FORMS DAILY; AT BEDTIME, LEVODOPA: 200 MG; CARBIDOPA: 50 MG
     Route: 065
  9. ARIPIPRAZOLE. [Suspect]
     Active Substance: ARIPIPRAZOLE
     Indication: OBSESSIVE-COMPULSIVE DISORDER
     Dosage: 60 MILLIGRAM DAILY;
     Route: 065

REACTIONS (2)
  - Parkinson^s disease [Recovering/Resolving]
  - Tic [Recovering/Resolving]
